FAERS Safety Report 6043649-5 (Version None)
Quarter: 2009Q1

REPORT INFORMATION
  Report Type: 
  Country: None (occurrence: None)
  Receive Date: 20090115
  Receipt Date: 20090115
  Transmission Date: 20090719
  Serious: No
  Sender: FDA-Public Use
  Company Number: None

PATIENT
  Age: 49 Year
  Sex: Female
  Weight: 77.1115 kg

DRUGS (2)
  1. SINGULAIR [Suspect]
     Indication: ASTHMA
     Dosage: 10 MG 1 PO
     Route: 048
     Dates: start: 20081223, end: 20081226
  2. SINGULAIR [Suspect]
     Indication: MULTIPLE ALLERGIES
     Dosage: 10 MG 1 PO
     Route: 048
     Dates: start: 20081223, end: 20081226

REACTIONS (2)
  - DEPRESSION [None]
  - SUICIDAL IDEATION [None]
